FAERS Safety Report 18626154 (Version 1)
Quarter: 2020Q4

REPORT INFORMATION
  Report Type: Spontaneous
  Country: PG (occurrence: PG)
  Receive Date: 20201216
  Receipt Date: 20201216
  Transmission Date: 20210114
  Serious: Yes (Other)
  Sender: FDA-Public Use
  Company Number: PG-CELLTRION-2020-PG-000001

PATIENT
  Age: 25 Year
  Sex: Male

DRUGS (7)
  1. PYRIDOXINE [Concomitant]
     Active Substance: PYRIDOXINE
     Dosage: 100 MG ONCE DAILY
  2. CYCLOSERINE. [Concomitant]
     Active Substance: CYCLOSERINE
     Dosage: 500 MG ONCE DAILY
  3. KANAMYCIN [Concomitant]
     Active Substance: KANAMYCIN A SULFATE
     Indication: TUBERCULOSIS
     Dosage: 600 MG ONCE DAILY
  4. PYRAZINAMIDE. [Concomitant]
     Active Substance: PYRAZINAMIDE
     Dosage: 1500 MG ONCE DAILY
  5. LINEZOLID. [Concomitant]
     Active Substance: LINEZOLID
     Indication: TUBERCULOSIS
  6. LEVOFLOXACIN (NON-SPECIFIC) [Suspect]
     Active Substance: LEVOFLOXACIN
     Indication: TUBERCULOSIS
     Dosage: 750 MG ONCE DAILY
  7. CLOFAZIMINE [Suspect]
     Active Substance: CLOFAZIMINE
     Indication: TUBERCULOSIS
     Dosage: 100 MG ONCE DAILY

REACTIONS (1)
  - Unmasking of previously unidentified disease [Unknown]
